FAERS Safety Report 15715219 (Version 2)
Quarter: 2018Q4

REPORT INFORMATION
  Report Type: Report from Study
  Country: DE (occurrence: DE)
  Receive Date: 20181212
  Receipt Date: 20181220
  Transmission Date: 20190205
  Serious: Yes (Hospitalization)
  Sender: FDA-Public Use
  Company Number: DE-EMD SERONO-9021180

PATIENT
  Age: 67 Year
  Sex: Male
  Weight: 79 kg

DRUGS (6)
  1. LEUCOVORIN                         /00566701/ [Suspect]
     Active Substance: LEUCOVORIN
     Indication: COLORECTAL CANCER METASTATIC
     Route: 042
     Dates: start: 20180221
  2. 5-FU                               /00098801/ [Suspect]
     Active Substance: FLUOROURACIL
     Indication: COLORECTAL CANCER METASTATIC
     Route: 042
     Dates: start: 20180221
  3. AVELUMAB [Suspect]
     Active Substance: AVELUMAB
     Indication: COLORECTAL CANCER METASTATIC
     Route: 042
     Dates: start: 20180409
  4. OXALIPLATIN. [Suspect]
     Active Substance: OXALIPLATIN
     Indication: COLORECTAL CANCER METASTATIC
     Route: 042
     Dates: start: 20180221
  5. CETUXIMAB. [Suspect]
     Active Substance: CETUXIMAB
     Indication: COLORECTAL CANCER METASTATIC
     Route: 042
     Dates: start: 20180221, end: 20180409
  6. CETUXIMAB. [Suspect]
     Active Substance: CETUXIMAB
     Route: 042
     Dates: start: 20180409

REACTIONS (1)
  - Immune system disorder [Recovered/Resolved]

NARRATIVE: CASE EVENT DATE: 20180409
